FAERS Safety Report 17694357 (Version 1)
Quarter: 2020Q2

REPORT INFORMATION
  Report Type: Spontaneous
  Country: FR (occurrence: FR)
  Receive Date: 20200422
  Receipt Date: 20200422
  Transmission Date: 20200714
  Serious: Yes (Hospitalization)
  Sender: FDA-Public Use
  Company Number: FR-JNJFOC-20200427429

PATIENT
  Age: 48 Year
  Sex: Female

DRUGS (2)
  1. CLOMIPRAMINE [Suspect]
     Active Substance: CLOMIPRAMINE
     Indication: DEPRESSION
     Dosage: 50 MILLIGRAM, 1/DAY
     Route: 048
     Dates: start: 201809
  2. TRAMADOL/APAP [Suspect]
     Active Substance: ACETAMINOPHEN\TRAMADOL
     Indication: PAIN
     Dosage: 6 DOSAGE FORM, 1/DAY
     Route: 048
     Dates: start: 2015

REACTIONS (1)
  - Glucocorticoid deficiency [Recovered/Resolved]

NARRATIVE: CASE EVENT DATE: 20200303
